FAERS Safety Report 17809045 (Version 1)
Quarter: 2020Q2

REPORT INFORMATION
  Report Type: Report from Study
  Country: ES (occurrence: ES)
  Receive Date: 20200520
  Receipt Date: 20200520
  Transmission Date: 20200714
  Serious: Yes (Hospitalization)
  Sender: FDA-Public Use
  Company Number: ES-TEVA-2020-ES-1236354

PATIENT
  Age: 84 Year
  Sex: Male

DRUGS (6)
  1. UNIBENESTAN 10 MG COMPRIMIDOS DE LIBERACION PROLONGADA , 30 COMPRIMIDO [Concomitant]
     Indication: BENIGN PROSTATIC HYPERPLASIA
     Dosage: 10 MG
     Route: 048
  2. FUROSEMIDA (1615A) [Concomitant]
     Active Substance: FUROSEMIDE
     Dosage: 80 MG
     Route: 048
     Dates: start: 201002
  3. ADIRO 100 MG COMPRIMIDOS GASTRORRESISTENTES EFG, 30 COMPRIMIDOS (POLIP [Suspect]
     Active Substance: ASPIRIN
     Dosage: 1000 MG
     Route: 048
     Dates: end: 20170523
  4. SIMVASTATINA (1023A) [Concomitant]
     Active Substance: SIMVASTATIN
     Indication: DYSLIPIDAEMIA
     Dosage: 10 MG
     Route: 048
  5. IBUPROFENO (1769A) [Suspect]
     Active Substance: IBUPROFEN
     Indication: PAIN
     Dosage: 600 MG
     Route: 048
     Dates: start: 20170516, end: 20170522
  6. OMEPRAZOL (2141A) [Concomitant]
     Active Substance: OMEPRAZOLE
     Dosage: 10 MG
     Route: 048
     Dates: start: 201008

REACTIONS (1)
  - Lower gastrointestinal haemorrhage [Recovered/Resolved]

NARRATIVE: CASE EVENT DATE: 20170523
